FAERS Safety Report 18826484 (Version 1)
Quarter: 2021Q1

REPORT INFORMATION
  Report Type: Spontaneous
  Country: US (occurrence: US)
  Receive Date: 20210201
  Receipt Date: 20210201
  Transmission Date: 20210419
  Serious: No
  Sender: FDA-Public Use
  Company Number: US-ABBVIE-20K-163-3411166-00

PATIENT
  Sex: Female

DRUGS (2)
  1. HUMIRA [Suspect]
     Active Substance: ADALIMUMAB
     Indication: ANKYLOSING SPONDYLITIS
     Route: 058
  2. TALTZ [Suspect]
     Active Substance: IXEKIZUMAB
     Indication: ANKYLOSING SPONDYLITIS
     Route: 065

REACTIONS (12)
  - Lordosis [Unknown]
  - Burning sensation [Unknown]
  - Paraesthesia [Unknown]
  - Pain [Unknown]
  - Meniscus injury [Unknown]
  - Liver function test increased [Recovering/Resolving]
  - Anger [Unknown]
  - Anxiety [Unknown]
  - Drug ineffective [Unknown]
  - Endodontic procedure [Unknown]
  - Feeling hot [Unknown]
  - Back pain [Unknown]
